FAERS Safety Report 6153261-5 (Version None)
Quarter: 2009Q2

REPORT INFORMATION
  Report Type: 
  Country: None (occurrence: None)
  Receive Date: 20090413
  Receipt Date: 20090204
  Transmission Date: 20091009
  Serious: No
  Sender: FDA-Public Use
  Company Number: US-BAYER-200913362NA

PATIENT
  Age: 43 Year
  Sex: Female
  Weight: 50 kg

DRUGS (1)
  1. MAGNEVIST [Suspect]
     Indication: NUCLEAR MAGNETIC RESONANCE IMAGING BRAIN
     Dosage: TOTAL DAILY DOSE: 10 ML  UNIT DOSE: 20 ML
     Route: 042
     Dates: start: 20090204, end: 20090204

REACTIONS (4)
  - CHEST DISCOMFORT [None]
  - NAUSEA [None]
  - PRURITUS [None]
  - URTICARIA [None]
